FAERS Safety Report 5167457-2 (Version None)
Quarter: 2006Q4

REPORT INFORMATION
  Report Type: 
  Country: None (occurrence: None)
  Receive Date: 20061130
  Receipt Date: 20061116
  Transmission Date: 20070319
  Serious: Yes (Other)
  Sender: FDA-Public Use
  Company Number: AZAAU200600403

PATIENT
  Age: 71 Year
  Sex: Male
  Weight: 70 kg

DRUGS (14)
  1. AZACITIDINE  (AZACITIDINE) [Suspect]
     Indication: MYELODYSPLASTIC SYNDROME
     Dosage: 75 MG/M2 (DAILY X 7 DAYS, SUBCUTANEOUS
     Route: 058
     Dates: start: 20061017, end: 20061023
  2. PREDNEFRIN FORTE (PREDNEFRIN FORTE) (DROPS) [Concomitant]
  3. TRANEXAMIC ACID (TRANEXAMIC ACID) [Concomitant]
  4. DICLOFENAC EC TABS 9DICLOFENAC) [Concomitant]
  5. VOLTAREN SUPPOSITORY (DICLOFENAC) [Concomitant]
  6. RABEPRAZOLE SODIUM [Concomitant]
  7. COLOXYL WITH SENNA (COLOXYL WITH SENNA) [Concomitant]
  8. DUPHALAC [Concomitant]
  9. FUROSEMIDE [Concomitant]
  10. POTASSIUM CHLORIDE [Concomitant]
  11. NILSTAT (NYSTATIN) [Concomitant]
  12. ACETAMINOPHEN [Concomitant]
  13. OMEPRAZOLE [Concomitant]
  14. MS CONTIN [Concomitant]

REACTIONS (3)
  - HYPHAEMA [None]
  - THROMBOCYTOPENIA [None]
  - VISION BLURRED [None]
